FAERS Safety Report 19694784 (Version 1)
Quarter: 2021Q3

REPORT INFORMATION
  Report Type: Spontaneous
  Country: SE (occurrence: SE)
  Receive Date: 20210813
  Receipt Date: 20210813
  Transmission Date: 20211014
  Serious: Yes (Life-Threatening)
  Sender: FDA-Public Use
  Company Number: SE-ORGANON-O2108SWE000844

PATIENT
  Age: 23 Year
  Sex: Female

DRUGS (2)
  1. DESLORATADINE SANDOZ [Concomitant]
     Active Substance: DESLORATADINE
     Dosage: 5 MILLIGRAM, QD
     Route: 048
     Dates: start: 201804, end: 2021
  2. NUVARING [Suspect]
     Active Substance: ETHINYL ESTRADIOL\ETONOGESTREL
     Indication: DYSMENORRHOEA
     Dosage: VAGINAL DELIVERY SYSTEM
     Route: 067
     Dates: start: 201608, end: 202007

REACTIONS (1)
  - Smear vaginal abnormal [Recovered/Resolved]

NARRATIVE: CASE EVENT DATE: 201903
